FAERS Safety Report 5689836-7 (Version None)
Quarter: 2008Q1

REPORT INFORMATION
  Report Type: 
  Country: None (occurrence: None)
  Receive Date: 20080331
  Receipt Date: 20080331
  Transmission Date: 20080703
  Serious: Yes (Other)
  Sender: FDA-Public Use
  Company Number: None

PATIENT
  Age: 33 Year
  Weight: 77.1115 kg

DRUGS (1)
  1. PROPECIA [Suspect]
     Dosage: 1 TABLET ONCE A DAY BUCCAL
     Route: 002
     Dates: start: 20071201, end: 20080329

REACTIONS (5)
  - BIPOLAR DISORDER [None]
  - DEPRESSION [None]
  - MOOD SWINGS [None]
  - PERSONALITY CHANGE [None]
  - STRESS [None]
